FAERS Safety Report 6359265-1 (Version None)
Quarter: 2009Q3

REPORT INFORMATION
  Report Type: 
  Country: None (occurrence: None)
  Receive Date: 20090914
  Receipt Date: 20090828
  Transmission Date: 20100115
  Serious: Yes (Other)
  Sender: FDA-Public Use
  Company Number: ACO_00591_2009

PATIENT
  Age: 70 Year
  Sex: Female

DRUGS (4)
  1. SIRDALUD /00740702/ (SIRDALUD - TIZANDINE HYDROCHLORIDE) (NOT SPECIFIE [Suspect]
     Indication: DRUG USE FOR UNKNOWN INDICATION
     Dosage: (4 MG BID)
     Dates: start: 20090808, end: 20090818
  2. ZALDIVAR /01573601/ [Concomitant]
  3. TEVETEN /01347301/ [Concomitant]
  4. DICLONAT [Concomitant]

REACTIONS (4)
  - ASTHENIA [None]
  - BLOOD PRESSURE DECREASED [None]
  - SOMNOLENCE [None]
  - URINARY HESITATION [None]
